FAERS Safety Report 8932869 (Version 3)
Quarter: 2013Q4

REPORT INFORMATION
  Report Type: Spontaneous
  Country: US (occurrence: US)
  Receive Date: 20121129
  Receipt Date: 20131223
  Transmission Date: 20140711
  Serious: Yes (Hospitalization, Other)
  Sender: FDA-Public Use
  Company Number: US-BAYER-2012-124549

PATIENT
  Age: 29 Year
  Sex: Female
  Weight: 49.89 kg

DRUGS (16)
  1. YAZ [Suspect]
     Indication: PREMENSTRUAL SYNDROME
     Dosage: UNK
     Dates: start: 200707, end: 2010
  2. RELPAX [Concomitant]
     Indication: MIGRAINE
     Dosage: UNK
     Dates: start: 2005
  3. TOPROL XL [Concomitant]
     Indication: PALPITATIONS
     Dosage: UNK
     Dates: start: 2008, end: 2012
  4. TOPROL XL [Concomitant]
     Indication: BLOOD PRESSURE ABNORMAL
  5. LORTAB [Concomitant]
     Indication: JOINT DISLOCATION
     Dosage: UNK
     Dates: start: 200903
  6. SUBOXONE [Concomitant]
     Indication: DRUG DEPENDENCE
     Dosage: UNK
     Dates: start: 2009
  7. KLONOPIN [Concomitant]
     Indication: ANXIETY
     Dosage: UNK
     Dates: start: 2007
  8. LAMICTAL [Concomitant]
     Indication: DEPRESSION
     Dosage: UNK
     Dates: start: 2008
  9. ABILIFY [Concomitant]
     Indication: DEPRESSION
     Dosage: UNK
     Dates: start: 2008
  10. PROZAC [Concomitant]
     Indication: DEPRESSION
     Dosage: UNK
     Dates: start: 2008, end: 2012
  11. ASPIRIN W/CAFFEINE [Concomitant]
     Indication: PAIN
     Dosage: AS NEEDED
  12. MILK OF MAGNESIA [Concomitant]
     Indication: PAIN
     Dosage: AS NEEDED
  13. MILK OF MAGNESIA [Concomitant]
     Indication: IRRITABLE BOWEL SYNDROME
  14. OMEPRAZOLE [Concomitant]
  15. TOPAMAX [Concomitant]
     Dosage: UNK
  16. PEPCID [Concomitant]
     Dosage: UNK

REACTIONS (3)
  - Cholecystectomy [None]
  - Cholecystitis chronic [None]
  - Injury [None]
